FAERS Safety Report 9464715 (Version 3)
Quarter: 2013Q3

REPORT INFORMATION
  Report Type: Spontaneous
  Country: US (occurrence: US)
  Receive Date: 20130819
  Receipt Date: 20130926
  Transmission Date: 20140515
  Serious: No
  Sender: FDA-Public Use
  Company Number: US-PFIZER INC-2013237599

PATIENT
  Age: 71 Year
  Sex: Female
  Weight: 72.56 kg

DRUGS (3)
  1. PREMARIN [Suspect]
     Dosage: 0.9 MG, 1X/DAY
     Route: 048
     Dates: start: 1982
  2. PREMARIN [Suspect]
     Dosage: 0.45 MG, 1X/DAY
     Route: 048
  3. SYNTHROID [Concomitant]
     Indication: HYPOTHYROIDISM
     Dosage: 1 MG, 1X/DAY

REACTIONS (4)
  - Product quality issue [Unknown]
  - Hot flush [Recovered/Resolved]
  - Sleep disorder [Recovered/Resolved]
  - Irritability [Recovered/Resolved]
